FAERS Safety Report 5598507-7 (Version None)
Quarter: 2008Q1

REPORT INFORMATION
  Report Type: 
  Country: None (occurrence: None)
  Receive Date: 20080122
  Receipt Date: 20080118
  Transmission Date: 20080703
  Serious: Yes (Hospitalization)
  Sender: FDA-Public Use
  Company Number: NL-ASTRAZENECA-2008AC00217

PATIENT
  Age: 22769 Day
  Sex: Female
  Weight: 65 kg

DRUGS (7)
  1. SEROQUEL [Suspect]
     Indication: SCHIZOPHRENIA
     Route: 048
     Dates: start: 20020101, end: 20071231
  2. SEROQUEL [Suspect]
     Route: 048
     Dates: start: 20080101
  3. MICARDIS [Concomitant]
     Dosage: TAKEN EVERY 36 HOURS.
  4. LIPITOR [Concomitant]
  5. SPIRONOLACTONUM [Concomitant]
  6. TEMAZEPAMUM [Concomitant]
     Dates: start: 20080104
  7. LORAZEPAMUM [Concomitant]
     Dates: start: 20080104

REACTIONS (1)
  - HYPOTHERMIA [None]
